FAERS Safety Report 6057431-6 (Version None)
Quarter: 2009Q1

REPORT INFORMATION
  Report Type: 
  Country: None (occurrence: None)
  Receive Date: 20090129
  Receipt Date: 20090121
  Transmission Date: 20090719
  Serious: Yes (Hospitalization)
  Sender: FDA-Public Use
  Company Number: FR-ELI_LILLY_AND_COMPANY-FR200901003389

PATIENT
  Sex: Female
  Weight: 3.31 kg

DRUGS (2)
  1. PROZAC [Suspect]
     Dosage: 20 MG, DAILY (1/D)
     Route: 064
  2. LEXOMIL [Concomitant]
     Dosage: 0.75 D/F, DAILY (1/D)
     Route: 064

REACTIONS (6)
  - AGITATION [None]
  - DRUG EXPOSURE DURING PREGNANCY [None]
  - DRUG WITHDRAWAL SYNDROME NEONATAL [None]
  - IRRITABILITY [None]
  - PHYSICAL EXAMINATION ABNORMAL [None]
  - SLEEP DISORDER [None]
